FAERS Safety Report 16846867 (Version 1)
Quarter: 2019Q3

REPORT INFORMATION
  Report Type: Spontaneous
  Country: US (occurrence: US)
  Receive Date: 20190924
  Receipt Date: 20190924
  Transmission Date: 20191005
  Serious: No
  Sender: FDA-Public Use
  Company Number: US-DSJP-DSU-2019-135749

PATIENT

DRUGS (3)
  1. EVOXAC AG [Suspect]
     Active Substance: CEVIMELINE HYDROCHLORIDE
     Indication: CRANIOCEREBRAL INJURY
     Dosage: 30 MG, TID
     Route: 048
     Dates: start: 2017, end: 2017
  2. EVOXAC [Suspect]
     Active Substance: CEVIMELINE HYDROCHLORIDE
     Indication: CRANIOCEREBRAL INJURY
     Dosage: 30 MG, TID
     Route: 048
     Dates: end: 2017
  3. EVOXAC [Suspect]
     Active Substance: CEVIMELINE HYDROCHLORIDE
     Dosage: 30 MG, TID
     Route: 048
     Dates: start: 2017

REACTIONS (2)
  - Drug ineffective [Unknown]
  - Off label use [Not Recovered/Not Resolved]

NARRATIVE: CASE EVENT DATE: 2017
